FAERS Safety Report 11410130 (Version 1)
Quarter: 2015Q3

REPORT INFORMATION
  Report Type: Spontaneous
  Country: US (occurrence: None)
  Receive Date: 20150817
  Receipt Date: 20150817
  Transmission Date: 20151125
  Serious: Yes (Disabling)
  Sender: FDA-Public Use
  Company Number: PHEH2014US014238

PATIENT
  Age: 19 Year
  Sex: Female
  Weight: 65 kg

DRUGS (3)
  1. CYMBALTA [Concomitant]
     Active Substance: DULOXETINE HYDROCHLORIDE
  2. OMEPRAZOLE. [Concomitant]
     Active Substance: OMEPRAZOLE
  3. ILARIS [Suspect]
     Active Substance: CANAKINUMAB
     Indication: MUCKLE-WELLS SYNDROME
     Dosage: RECEIVED AFTER 12 WEEKS; (Q8 WEEKS)
     Route: 058
     Dates: start: 20121115

REACTIONS (6)
  - Pain [None]
  - Rash [None]
  - Inappropriate schedule of drug administration [None]
  - Malaise [None]
  - Pyrexia [None]
  - Muckle-Wells syndrome [None]

NARRATIVE: CASE EVENT DATE: 20140617
